FAERS Safety Report 6399560-3 (Version None)
Quarter: 2009Q4

REPORT INFORMATION
  Report Type: 
  Country: None (occurrence: None)
  Receive Date: 20091014
  Receipt Date: 20071009
  Transmission Date: 20100525
  Serious: Yes (Other)
  Sender: FDA-Public Use
  Company Number: US-ASTRAZENECA-2006UW08492

PATIENT
  Age: 48 Year
  Sex: Female
  Weight: 68 kg

DRUGS (8)
  1. SEROQUEL [Suspect]
     Indication: SCHIZOPHRENIA
     Route: 048
     Dates: start: 20040601, end: 20061101
  2. SEROQUEL [Suspect]
     Indication: DEPRESSION
     Route: 048
     Dates: start: 20040601, end: 20061101
  3. SEROQUEL [Suspect]
     Route: 048
     Dates: start: 20070119
  4. SEROQUEL [Suspect]
     Route: 048
     Dates: start: 20070119
  5. LEXAPRO [Concomitant]
     Route: 048
     Dates: start: 20070119
  6. FROVA [Concomitant]
     Dates: start: 20070228
  7. ZOCOR [Concomitant]
     Dates: start: 20070228
  8. LISINOPRIL [Concomitant]
     Dates: start: 20070228

REACTIONS (8)
  - DIABETES MELLITUS [None]
  - DIABETES MELLITUS INADEQUATE CONTROL [None]
  - DIABETIC GASTROPARESIS [None]
  - DIABETIC NEPHROPATHY [None]
  - DIABETIC NEUROPATHY [None]
  - DIABETIC RETINOPATHY [None]
  - EYE DISORDER [None]
  - GLAUCOMA [None]
